FAERS Safety Report 18889779 (Version 4)
Quarter: 2021Q2

REPORT INFORMATION
  Report Type: Report from Study
  Country: CA (occurrence: CA)
  Receive Date: 20210213
  Receipt Date: 20210408
  Transmission Date: 20210717
  Serious: Yes (Death, Life-Threatening, Hospitalization)
  Sender: FDA-Public Use
  Company Number: PHHY2016CA040779

PATIENT
  Age: 74 Year
  Sex: Female

DRUGS (6)
  1. COSENTYX [Suspect]
     Active Substance: SECUKINUMAB
     Dosage: 300 MG, QW
     Route: 058
     Dates: start: 20160411
  2. COSENTYX [Suspect]
     Active Substance: SECUKINUMAB
     Indication: PSORIASIS
     Dosage: 300 MG, QMO
     Route: 058
     Dates: start: 20160321
  3. METHOTREXATE. [Concomitant]
     Active Substance: METHOTREXATE
     Indication: PRODUCT USED FOR UNKNOWN INDICATION
     Dosage: UNK
     Route: 065
  4. COSENTYX [Suspect]
     Active Substance: SECUKINUMAB
     Dosage: 300 MG, QMO
     Route: 058
     Dates: start: 20170118
  5. COSENTYX [Suspect]
     Active Substance: SECUKINUMAB
     Dosage: 300 MG, QMO
     Route: 058
     Dates: start: 20160418
  6. COSENTYX [Suspect]
     Active Substance: SECUKINUMAB
     Dosage: 300 MG, QMO
     Route: 058
     Dates: start: 20210118

REACTIONS (23)
  - Eyelid margin crusting [Recovered/Resolved]
  - Eye pruritus [Unknown]
  - Pain [Unknown]
  - Dizziness [Unknown]
  - Nausea [Unknown]
  - Fungal infection [Unknown]
  - Injection site pain [Unknown]
  - Incorrect dose administered [Unknown]
  - Near death experience [Unknown]
  - Arterial occlusive disease [Recovered/Resolved]
  - Haemorrhage [Unknown]
  - Ear disorder [Recovering/Resolving]
  - Throat irritation [Unknown]
  - Cough [Unknown]
  - Somnolence [Unknown]
  - Fatigue [Unknown]
  - Injection site bruising [Unknown]
  - Aortic dissection [Unknown]
  - Dyspnoea [Unknown]
  - Injection site haemorrhage [Unknown]
  - Death [Fatal]
  - Psoriasis [Unknown]
  - Dry throat [Unknown]

NARRATIVE: CASE EVENT DATE: 2016
